FAERS Safety Report 8305640-5 (Version None)
Quarter: 2012Q2

REPORT INFORMATION
  Report Type: 
  Country: None (occurrence: None)
  Receive Date: 20120423
  Receipt Date: 20120413
  Transmission Date: 20120825
  Serious: Yes (Hospitalization)
  Sender: FDA-Public Use
  Company Number: FR-PFIZER INC-A02200700828

PATIENT
  Age: 65 Year
  Sex: Male
  Weight: 60 kg

DRUGS (24)
  1. FLUOROURACIL [Suspect]
     Dosage: 1670 MG, 1X/DAY
     Route: 042
     Dates: start: 20070109, end: 20070110
  2. FLUOROURACIL [Suspect]
     Dosage: 835.0 MG, 1X/DAY
     Dates: start: 20070215, end: 20070216
  3. IRINOTECAN HCL [Suspect]
     Dosage: 300 MG, 1X/DAY
     Route: 042
     Dates: start: 20061123, end: 20061123
  4. LEVOLEUCOVORIN CALCIUM [Suspect]
     Dosage: 167 MG, 1X/DAY
     Route: 042
     Dates: start: 20070109, end: 20070110
  5. FLUOROURACIL [Suspect]
     Dosage: 1670 MG, 1X/DAY
     Route: 042
     Dates: start: 20061123, end: 20061124
  6. LEVOLEUCOVORIN CALCIUM [Suspect]
     Dosage: 83.5 MG, 1X/DAY
     Route: 042
     Dates: start: 20070215, end: 20070216
  7. PROGRAF [Concomitant]
  8. DURAGESIC-100 [Concomitant]
  9. IRINOTECAN HCL [Suspect]
     Dosage: 300 MG, 1X/DAY
     Route: 042
     Dates: start: 20061214, end: 20061214
  10. FLUOROURACIL [Suspect]
     Dosage: 1670 MG, 1X/DAY
     Route: 042
     Dates: start: 20061214, end: 20061215
  11. IRINOTECAN HCL [Suspect]
     Indication: COLON CANCER METASTATIC
     Dosage: 302 MG, CYCLIC
     Route: 042
     Dates: start: 20061109, end: 20061109
  12. IRINOTECAN HCL [Suspect]
     Dosage: 300 MG, 1X/DAY
     Route: 042
     Dates: start: 20070109, end: 20070109
  13. LEVOLEUCOVORIN CALCIUM [Suspect]
     Indication: COLON CANCER METASTATIC
     Dosage: 168 MG, 1X/DAY
     Route: 042
     Dates: start: 20061109, end: 20061110
  14. AVASTIN [Suspect]
     Dosage: 300 MG, 1X/DAY
     Route: 042
     Dates: start: 20061214, end: 20061214
  15. FLUOROURACIL [Suspect]
     Indication: COLON CANCER METASTATIC
     Dosage: 1680 MG, 1X/DAY
     Route: 042
     Dates: start: 20061109, end: 20061110
  16. AVASTIN [Suspect]
     Dosage: 300 MG, 1X/DAY
     Route: 042
     Dates: start: 20070109, end: 20070109
  17. IRINOTECAN HCL [Suspect]
     Dosage: 150 MG, 1X/DAY
     Route: 042
     Dates: start: 20070215, end: 20070215
  18. LEVOLEUCOVORIN CALCIUM [Suspect]
     Dosage: 167.0 MG, 1X/DAY
     Route: 042
     Dates: start: 20061123, end: 20061124
  19. LEVOLEUCOVORIN CALCIUM [Suspect]
     Dosage: 167 MG, 1X/DAY
     Route: 042
     Dates: start: 20061214, end: 20061215
  20. AVASTIN [Suspect]
     Indication: COLON CANCER METASTATIC
     Dosage: 305 MG, 1X/DAY
     Route: 042
     Dates: start: 20061109, end: 20061109
  21. AVASTIN [Suspect]
     Dosage: 300.0 MG, 1X/DAY
     Route: 042
     Dates: start: 20061123, end: 20061123
  22. AVASTIN [Suspect]
     Dosage: 150 MG, 1X/DAY
     Route: 042
     Dates: start: 20070215, end: 20070215
  23. MORPHINE SULFATE [Concomitant]
  24. MIXTARD HUMAN 70/30 [Concomitant]

REACTIONS (12)
  - HYPOKALAEMIA [None]
  - WEIGHT DECREASED [None]
  - ENCEPHALOPATHY [None]
  - VOMITING [None]
  - ABDOMINAL PAIN [None]
  - CONFUSIONAL STATE [None]
  - DEHYDRATION [None]
  - NEUTROPENIA [None]
  - DIARRHOEA [None]
  - RENAL FAILURE ACUTE [None]
  - HYPONATRAEMIA [None]
  - NERVOUS SYSTEM DISORDER [None]
